FAERS Safety Report 24007863 (Version 5)
Quarter: 2024Q4

REPORT INFORMATION
  Report Type: Report from Study
  Country: US (occurrence: US)
  Receive Date: 20240625
  Receipt Date: 20241004
  Transmission Date: 20250114
  Serious: Yes (Other)
  Sender: ACADIA PHARMACEUTICALS
  Company Number: US-ACADIA PHARMACEUTICALS INC.-ACA-2024-PIM-002681

PATIENT
  Age: 74 Year
  Sex: Male

DRUGS (29)
  1. NUPLAZID [Suspect]
     Active Substance: PIMAVANSERIN TARTRATE
     Indication: Parkinson^s disease psychosis
     Dosage: 34 MILLIGRAM, QD
     Route: 048
     Dates: start: 20240522
  2. NUPLAZID [Suspect]
     Active Substance: PIMAVANSERIN TARTRATE
     Indication: Hallucination
  3. NUPLAZID [Suspect]
     Active Substance: PIMAVANSERIN TARTRATE
     Indication: Parkinson^s disease
  4. MAGNESIUM [Concomitant]
     Active Substance: MAGNESIUM
  5. VITAMIN K [Concomitant]
     Active Substance: PHYTONADIONE
  6. FISH OIL [Concomitant]
     Active Substance: FISH OIL
  7. ALPRAZOLAM [Concomitant]
     Active Substance: ALPRAZOLAM
  8. LISINOPRIL [Concomitant]
     Active Substance: LISINOPRIL
  9. CARVEDILOL [Concomitant]
     Active Substance: CARVEDILOL
  10. LEVOTHYROXINE [Concomitant]
     Active Substance: LEVOTHYROXINE
  11. FINASTERIDE [Concomitant]
     Active Substance: FINASTERIDE
  12. MYRBETRIQ [Concomitant]
     Active Substance: MIRABEGRON
  13. TAMSULOSIN [Concomitant]
     Active Substance: TAMSULOSIN
  14. VENLAFAXINE [Concomitant]
     Active Substance: VENLAFAXINE HYDROCHLORIDE
  15. FLUDROCORTISONE [Concomitant]
     Active Substance: FLUDROCORTISONE
  16. FUROSEMIDE [Concomitant]
     Active Substance: FUROSEMIDE
  17. ATORVASTATIN [Concomitant]
     Active Substance: ATORVASTATIN
  18. KLOR-CON [Concomitant]
     Active Substance: POTASSIUM CHLORIDE
  19. QUETIAPINE [Concomitant]
     Active Substance: QUETIAPINE
  20. GABAPENTIN [Concomitant]
     Active Substance: GABAPENTIN
  21. VITAMINS NOS [Concomitant]
     Active Substance: VITAMINS
  22. METHOCARBAMOL AL [Concomitant]
  23. CARBIDOPA\LEVODOPA [Concomitant]
     Active Substance: CARBIDOPA\LEVODOPA
  24. MIRALAX [Concomitant]
     Active Substance: POLYETHYLENE GLYCOL 3350
  25. LIDOCAINE [Concomitant]
     Active Substance: LIDOCAINE
  26. MUPIROCIN [Concomitant]
     Active Substance: MUPIROCIN
  27. ACETAMINOPHEN\CODEINE PHOSPHATE [Concomitant]
     Active Substance: ACETAMINOPHEN\CODEINE PHOSPHATE
  28. ELIQUIS [Concomitant]
     Active Substance: APIXABAN
  29. AMOXICILLIN\CLAVULANATE POTASSIUM [Concomitant]
     Active Substance: AMOXICILLIN\CLAVULANATE POTASSIUM
     Dosage: UNK

REACTIONS (8)
  - Depressed level of consciousness [Unknown]
  - Urinary tract infection [Not Recovered/Not Resolved]
  - Rib fracture [Unknown]
  - Road traffic accident [Unknown]
  - Ankle fracture [Unknown]
  - Delusion [Unknown]
  - Hallucination [Not Recovered/Not Resolved]
  - Hallucination, auditory [Unknown]

NARRATIVE: CASE EVENT DATE: 20240615
